FAERS Safety Report 5374882-3 (Version None)
Quarter: 2007Q2

REPORT INFORMATION
  Report Type: 
  Country: None (occurrence: None)
  Receive Date: 20070629
  Receipt Date: 20070625
  Transmission Date: 20071010
  Serious: Yes (Life-Threatening, Other)
  Sender: FDA-Public Use
  Company Number: GB-MERCK-0706GBR00107

PATIENT
  Age: 64 Year
  Sex: Male
  Weight: 105 kg

DRUGS (4)
  1. ZETIA [Suspect]
     Indication: HYPERCHOLESTEROLAEMIA
     Route: 048
     Dates: start: 20060912, end: 20070305
  2. ARTHROTEC [Concomitant]
     Indication: ARTHRITIS
     Route: 048
     Dates: start: 19950101
  3. ATORVASTATIN [Concomitant]
     Indication: BLOOD CHOLESTEROL INCREASED
     Route: 048
     Dates: start: 20020831
  4. ACETAMINOPHEN AND CODEINE PHOSPHATE [Concomitant]
     Indication: ARTHRITIS
     Route: 048
     Dates: start: 20040101

REACTIONS (3)
  - EPISTAXIS [None]
  - FULL BLOOD COUNT ABNORMAL [None]
  - THROMBOCYTOPENIA [None]
